FAERS Safety Report 5260143-X (Version None)
Quarter: 2007Q1

REPORT INFORMATION
  Report Type: 
  Country: None (occurrence: None)
  Receive Date: 20070309
  Receipt Date: 20060403
  Transmission Date: 20070707
  Serious: No
  Sender: FDA-Public Use
  Company Number: US-GLAXOSMITHKLINE-A0599845A

PATIENT
  Age: 38 Year
  Sex: Male

DRUGS (3)
  1. NICORETTE (MINT) [Suspect]
     Dates: start: 20040930
  2. NICORETTE (MINT) [Suspect]
     Dates: start: 20040930
  3. NICORETTE (MINT) [Suspect]
     Dates: start: 20060327

REACTIONS (3)
  - ABDOMINAL PAIN UPPER [None]
  - INTENTIONAL DRUG MISUSE [None]
  - MOUTH ULCERATION [None]
